FAERS Safety Report 7033903-2 (Version None)
Quarter: 2010Q4

REPORT INFORMATION
  Report Type: 
  Country: None (occurrence: None)
  Receive Date: 20101007
  Receipt Date: 20101004
  Transmission Date: 20110411
  Serious: Yes (Other)
  Sender: FDA-Public Use
  Company Number: CA-AMGEN-KDL423126

PATIENT
  Sex: Male
  Weight: 75 kg

DRUGS (1)
  1. ENBREL [Suspect]
     Indication: PSORIASIS
     Dates: start: 20080601, end: 20090101

REACTIONS (1)
  - THERAPEUTIC RESPONSE DECREASED [None]
